FAERS Safety Report 11359595 (Version 1)
Quarter: 2015Q3

REPORT INFORMATION
  Report Type: Spontaneous
  Country: US (occurrence: None)
  Receive Date: 20150807
  Receipt Date: 20150807
  Transmission Date: 20151125
  Serious: Yes (Hospitalization)
  Sender: FDA-Public Use
  Company Number: None

PATIENT
  Age: 41 Year
  Sex: Male
  Weight: 70.31 kg

DRUGS (2)
  1. GEMCITABINE HYDROCHLORIDE. [Suspect]
     Active Substance: GEMCITABINE HYDROCHLORIDE
     Dates: end: 20150721
  2. TAXOL [Suspect]
     Active Substance: PACLITAXEL
     Dates: end: 20150721

REACTIONS (8)
  - Blood culture positive [None]
  - Vomiting [None]
  - Chills [None]
  - Diarrhoea [None]
  - Device related infection [None]
  - Staphylococcal infection [None]
  - Pyrexia [None]
  - Nausea [None]

NARRATIVE: CASE EVENT DATE: 20150728
